FAERS Safety Report 8434089-X (Version None)
Quarter: 2012Q2

REPORT INFORMATION
  Report Type: 
  Country: None (occurrence: None)
  Receive Date: 20120613
  Receipt Date: 20120607
  Transmission Date: 20120825
  Serious: Yes (Death, Other)
  Sender: FDA-Public Use
  Company Number: US-PFIZER INC-2012111989

PATIENT
  Sex: Male

DRUGS (1)
  1. VFEND [Suspect]
     Indication: PULMONARY CAVITATION
     Dosage: 1-200 MG, 2X/DAY

REACTIONS (1)
  - PNEUMONIA [None]
